FAERS Safety Report 19264091 (Version 1)
Quarter: 2021Q2

REPORT INFORMATION
  Report Type: Spontaneous
  Country: US (occurrence: US)
  Receive Date: 20210515
  Receipt Date: 20210515
  Transmission Date: 20210717
  Serious: Yes (Disabling)
  Sender: FDA-Public Use
  Company Number: None

PATIENT
  Age: 28 Year
  Sex: Female
  Weight: 56 kg

DRUGS (3)
  1. HYDROCORTISONE. [Suspect]
     Active Substance: HYDROCORTISONE
  2. BETAMETHASONE. [Suspect]
     Active Substance: BETAMETHASONE
     Indication: ECZEMA
  3. EUMOVATE [Suspect]
     Active Substance: CLOBETASONE BUTYRATE

REACTIONS (8)
  - Acne [None]
  - Burning sensation [None]
  - Skin atrophy [None]
  - Pruritus [None]
  - Skin exfoliation [None]
  - Rash erythematous [None]
  - Erythema [None]
  - Rash [None]

NARRATIVE: CASE EVENT DATE: 20140712
